FAERS Safety Report 16771260 (Version 1)
Quarter: 2019Q3

REPORT INFORMATION
  Report Type: Spontaneous
  Country: GB (occurrence: GB)
  Receive Date: 20190904
  Receipt Date: 20190904
  Transmission Date: 20191005
  Serious: Yes (Hospitalization)
  Sender: FDA-Public Use
  Company Number: GB-TEVA-2019-GB-1101233

PATIENT
  Age: 72 Year
  Sex: Female

DRUGS (14)
  1. LOPERAMIDE [Concomitant]
     Active Substance: LOPERAMIDE
     Dosage: THREE/FOUR TIMES A DAY, 2 MG
  2. OMEPRAZOLE. [Concomitant]
     Active Substance: OMEPRAZOLE
     Dosage: 20 MG
  3. CARBAMAZEPINE. [Concomitant]
     Active Substance: CARBAMAZEPINE
     Dosage: 400MG+100MG, 1500 MG
  4. CYCLIZINE [Concomitant]
     Active Substance: CYCLIZINE
     Dosage: ONE TO BE TAKEN UP TO THREE TIMES A DAY, 50 MG
  5. PREGABALIN. [Concomitant]
     Active Substance: PREGABALIN
     Dosage: 300 MG
  6. LAMOTRIGINE. [Concomitant]
     Active Substance: LAMOTRIGINE
     Dosage: MORNING + NIGHT, 400 MG
  7. PARACETAMOL [Concomitant]
     Active Substance: ACETAMINOPHEN
     Dosage: FOUR TIMES A DAY, 1000 MG
  8. ALENDRONIC ACID [Suspect]
     Active Substance: ALENDRONIC ACID
     Dosage: 70 MG
  9. FERROUS FUMARATE [Concomitant]
     Active Substance: FERROUS FUMARATE
     Dosage: 610 MG
  10. EXEMESTANE. [Concomitant]
     Active Substance: EXEMESTANE
     Dosage: IN THE MORNING, 25 MG
  11. EVACAL D3 CHEWABLE [Concomitant]
     Dosage: MORNING + NIGHT, 2 DOSAGE FORM
  12. MIRTAZAPINE. [Concomitant]
     Active Substance: MIRTAZAPINE
     Dosage: AT NIGHT, 15 MG
  13. PHENYTOIN SODIUM. [Concomitant]
     Active Substance: PHENYTOIN SODIUM
     Dosage: AFTER MEALS, 200 MG
  14. ENOXAPARIN [Concomitant]
     Active Substance: ENOXAPARIN
     Dosage: IN THE MORNING, 40 MG
     Route: 058

REACTIONS (3)
  - Stomatitis [Unknown]
  - Abscess [Unknown]
  - Osteonecrosis of jaw [Unknown]
